FAERS Safety Report 7689535-6 (Version None)
Quarter: 2011Q3

REPORT INFORMATION
  Report Type: 
  Country: None (occurrence: None)
  Receive Date: 20110817
  Receipt Date: 20110808
  Transmission Date: 20111222
  Serious: Yes (Other)
  Sender: FDA-Public Use
  Company Number: TR-CEPHALON-US023473

PATIENT
  Age: 47 Year
  Sex: Male

DRUGS (4)
  1. PAROXETINE HCL [Concomitant]
     Indication: OBSESSIVE-COMPULSIVE DISORDER
     Route: 065
  2. CLOMIPRAMINE [Concomitant]
     Indication: OBSESSIVE-COMPULSIVE DISORDER
     Route: 065
  3. RISPERIDONE [Concomitant]
     Indication: OBSESSIVE-COMPULSIVE DISORDER
     Route: 065
  4. MODAFINIL [Suspect]
     Indication: SOMNOLENCE
     Route: 048
     Dates: start: 20060601, end: 20060601

REACTIONS (1)
  - OBSESSIVE-COMPULSIVE DISORDER [None]
